FAERS Safety Report 6373806-X (Version None)
Quarter: 2009Q3

REPORT INFORMATION
  Report Type: 
  Country: None (occurrence: None)
  Receive Date: 20090924
  Receipt Date: 20090618
  Transmission Date: 20100115
  Serious: No
  Sender: FDA-Public Use
  Company Number: US-ASTRAZENECA-2009UW14982

PATIENT
  Age: 44 Year
  Sex: Female
  Weight: 72.6 kg

DRUGS (4)
  1. SEROQUEL XR [Suspect]
     Indication: SLEEP DISORDER
     Route: 048
  2. SEROQUEL XR [Suspect]
     Route: 048
  3. TOPAMAX [Concomitant]
  4. SYNTHROID [Concomitant]

REACTIONS (6)
  - CONSTIPATION [None]
  - DYSKINESIA [None]
  - LETHARGY [None]
  - MUSCULOSKELETAL STIFFNESS [None]
  - PALPITATIONS [None]
  - RESTLESSNESS [None]
